FAERS Safety Report 7259731-0 (Version None)
Quarter: 2011Q1

REPORT INFORMATION
  Report Type: 
  Country: None (occurrence: None)
  Receive Date: 20110130
  Receipt Date: 20100903
  Transmission Date: 20110831
  Serious: No
  Sender: FDA-Public Use
  Company Number: US-ABBOTT-10P-163-0660867-00

PATIENT
  Age: 40 Year
  Sex: Female

DRUGS (11)
  1. METHOTREXATE [Concomitant]
  2. BUPROPION HCL [Concomitant]
  3. HUMIRA [Suspect]
     Indication: RHEUMATOID ARTHRITIS
     Route: 058
     Dates: start: 20090701
  4. CLONAZEPAM [Concomitant]
  5. GABAPENTIN [Concomitant]
  6. OMEPRAZOLE [Concomitant]
  7. PRAVASTATIN [Concomitant]
  8. SEROQUEL [Concomitant]
  9. HYDROCHLOROTHIAZIDE [Concomitant]
  10. LAMICTAL [Concomitant]
  11. LISINOPRIL [Concomitant]

REACTIONS (4)
  - INJECTION SITE PAIN [None]
  - INJECTION SITE VESICLES [None]
  - INCORRECT DOSE ADMINISTERED [None]
  - DEVICE MALFUNCTION [None]
